FAERS Safety Report 6867541-9 (Version None)
Quarter: 2010Q3

REPORT INFORMATION
  Report Type: 
  Country: None (occurrence: None)
  Receive Date: 20100722
  Receipt Date: 20100713
  Transmission Date: 20110219
  Serious: Yes (Other)
  Sender: FDA-Public Use
  Company Number: US-BAYER-201022226NA

PATIENT
  Age: 66 Year
  Sex: Female
  Weight: 79 kg

DRUGS (17)
  1. MAGNEVIST [Suspect]
     Indication: NUCLEAR MAGNETIC RESONANCE IMAGING
  2. OMNISCAN [Suspect]
     Indication: NUCLEAR MAGNETIC RESONANCE IMAGING
  3. OPTIMARK [Suspect]
     Indication: NUCLEAR MAGNETIC RESONANCE IMAGING
  4. MULTIHANCE [Suspect]
     Indication: NUCLEAR MAGNETIC RESONANCE IMAGING
  5. PROHANCE [Suspect]
     Indication: NUCLEAR MAGNETIC RESONANCE IMAGING
  6. PROGRAF [Concomitant]
     Dosage: 1 MG EVERY 12 HRS
     Route: 048
  7. PREDNISONE [Concomitant]
     Dosage: 5 MG EVERY MORNING
     Route: 048
  8. CELLCEPT [Concomitant]
     Dosage: 500 MG EVERY 6 HRS
  9. LIPITOR [Concomitant]
     Dosage: 10 MG QHS
     Route: 048
  10. METOPROLOL SUCCINATE [Concomitant]
  11. ALLOPURINOL [Concomitant]
  12. PROTONIX [Concomitant]
  13. RENAGEL [Concomitant]
     Dosage: 800 MG TWICE WITH MEALS
  14. NEPHRO CAPS [Concomitant]
  15. NEURONTIN [Concomitant]
  16. CARDIZAM CD [Concomitant]
  17. I-131 SODIUM IODIDE [Concomitant]

REACTIONS (6)
  - NEPHROGENIC SYSTEMIC FIBROSIS [None]
  - OEDEMA PERIPHERAL [None]
  - PAIN [None]
  - SKIN EXFOLIATION [None]
  - SKIN HYPERPIGMENTATION [None]
  - SKIN HYPERTROPHY [None]
